FAERS Safety Report 10251469 (Version 2)
Quarter: 2017Q4

REPORT INFORMATION
  Report Type: Report from Study
  Country: JP (occurrence: JP)
  Receive Date: 20140623
  Receipt Date: 20171103
  Transmission Date: 20180320
  Serious: Yes (Death)
  Sender: FDA-Public Use
  Company Number: JP-ROCHE-1421096

PATIENT
  Age: 50 Year
  Sex: Female

DRUGS (2)
  1. PACLITAXEL. [Suspect]
     Active Substance: PACLITAXEL
     Indication: BREAST CANCER
     Dosage: LAST DOSE ON 19/MAY/2014
     Route: 041
     Dates: start: 20140421
  2. BEVACIZUMAB. [Suspect]
     Active Substance: BEVACIZUMAB
     Indication: BREAST CANCER
     Dosage: DOSAGE IS UNCERTAIN.
     Route: 041
     Dates: start: 20140421

REACTIONS (2)
  - Hypertension [Unknown]
  - Malignant pleural effusion [Fatal]

NARRATIVE: CASE EVENT DATE: 20140421
